FAERS Safety Report 9515598 (Version 1)
Quarter: 2013Q3

REPORT INFORMATION
  Report Type: Spontaneous
  Country: DE (occurrence: DE)
  Receive Date: 20130911
  Receipt Date: 20130911
  Transmission Date: 20140515
  Serious: Yes (Other)
  Sender: FDA-Public Use
  Company Number: DE-ASTELLAS-2013EU007651

PATIENT
  Sex: Female

DRUGS (1)
  1. PROTOPIC [Suspect]
     Dosage: UNK
     Route: 065
     Dates: start: 201308

REACTIONS (2)
  - Lymphadenopathy [Unknown]
  - Melanocytic naevus [Unknown]
